FAERS Safety Report 7397652-3 (Version None)
Quarter: 2011Q1

REPORT INFORMATION
  Report Type: 
  Country: None (occurrence: None)
  Receive Date: 20110328
  Receipt Date: 20110203
  Transmission Date: 20110831
  Serious: No
  Sender: FDA-Public Use
  Company Number: 2011-00048

PATIENT
  Age: 68 Year
  Sex: Female
  Weight: 79.8331 kg

DRUGS (7)
  1. ZICAM COLD REMEDY ORAL MIST [Suspect]
     Dosage: AS DIRECTED X 2 DAYS
  2. ZETIA [Concomitant]
  3. MULTI-VITAMIN [Concomitant]
  4. CALCIUM [Concomitant]
  5. ALENDRONATE SOD. [Concomitant]
  6. FISH OIL [Concomitant]
  7. ASPIRIN [Concomitant]

REACTIONS (4)
  - AGEUSIA [None]
  - WEIGHT DECREASED [None]
  - HYPOSMIA [None]
  - DYSGEUSIA [None]
